FAERS Safety Report 22611243 (Version 1)
Quarter: 2023Q2

REPORT INFORMATION
  Report Type: Spontaneous
  Country: US (occurrence: US)
  Receive Date: 20230616
  Receipt Date: 20230616
  Transmission Date: 20230722
  Serious: No
  Sender: FDA-Public Use
  Company Number: US-TRIS PHARMA, INC.-23US010916

PATIENT

DRUGS (1)
  1. DYANAVEL XR [Suspect]
     Active Substance: AMPHETAMINE
     Indication: Product used for unknown indication
     Dosage: 4 MILLILITRE, QD
     Route: 048

REACTIONS (4)
  - Nasopharyngitis [Unknown]
  - Product dose omission issue [Unknown]
  - Product deposit [Unknown]
  - Off label use [Unknown]
